FAERS Safety Report 5773154-2 (Version None)
Quarter: 2008Q2

REPORT INFORMATION
  Report Type: 
  Country: None (occurrence: None)
  Receive Date: 20080615
  Receipt Date: 20080324
  Transmission Date: 20081010
  Serious: No
  Sender: FDA-Public Use
  Company Number: US-BAYER-200811308BCC

PATIENT
  Age: 58 Year
  Sex: Female
  Weight: 64 kg

DRUGS (3)
  1. ALEVE [Suspect]
     Indication: HEADACHE
     Dosage: AS USED: 220 MG  UNIT DOSE: 220 MG
     Route: 048
     Dates: start: 20080301
  2. BLOOD PRESSURE MEDICATION [Concomitant]
  3. ZOLOFT [Concomitant]

REACTIONS (2)
  - NAUSEA [None]
  - VOMITING [None]
